FAERS Safety Report 26080958 (Version 5)
Quarter: 2025Q4

REPORT INFORMATION
  Report Type: Spontaneous
  Country: CN (occurrence: CN)
  Receive Date: 20251124
  Receipt Date: 20251227
  Transmission Date: 20260117
  Serious: Yes (Other)
  Sender: AMGEN
  Company Number: CN-AMGEN-CHNSP2025229930

PATIENT
  Age: 69 Year
  Sex: Male

DRUGS (8)
  1. KYPROLIS [Suspect]
     Active Substance: CARFILZOMIB
     Indication: Plasma cell myeloma
     Dosage: 54 MILLIGRAM, D1,2,8,9,15,16
     Route: 065
     Dates: start: 20250915
  2. POMALIDOMIDE [Concomitant]
     Active Substance: POMALIDOMIDE
     Indication: Plasma cell myeloma
     Dosage: 4 MILLIGRAM, QOD, D1-21
     Route: 065
     Dates: start: 20250915
  3. DEXAMETHASONE [Concomitant]
     Active Substance: DEXAMETHASONE
     Indication: Plasma cell myeloma
     Dosage: 10 MILLIGRAM, D1,2,8,9,15,16
     Route: 065
     Dates: start: 20250915
  4. ATORVASTATIN [Concomitant]
     Active Substance: ATORVASTATIN
     Indication: Lipids abnormal
     Dosage: UNK
  5. FEBUXOSTAT [Concomitant]
     Active Substance: FEBUXOSTAT
     Indication: Blood uric acid increased
     Dosage: UNK
  6. LECITHIN [Concomitant]
     Active Substance: LECITHIN
     Indication: Hepatic enzyme increased
     Dosage: UNK
  7. GLUTATHIONE [Concomitant]
     Active Substance: GLUTATHIONE
     Indication: Hepatic enzyme increased
     Dosage: UNK
  8. URSODIOL [Concomitant]
     Active Substance: URSODIOL
     Indication: Jaundice
     Dosage: UNK

REACTIONS (5)
  - Myelosuppression [Unknown]
  - Rash papular [Unknown]
  - Pterygium [Unknown]
  - Full blood count abnormal [Unknown]
  - Hepatic enzyme increased [Unknown]

NARRATIVE: CASE EVENT DATE: 20250917
